FAERS Safety Report 5762595-5 (Version None)
Quarter: 2008Q2

REPORT INFORMATION
  Report Type: 
  Country: None (occurrence: None)
  Receive Date: 20080522
  Receipt Date: 20071125
  Transmission Date: 20081010
  Serious: Yes (Hospitalization)
  Sender: FDA-Public Use
  Company Number: 2007S1012408

PATIENT
  Age: 76 Year
  Sex: Female

DRUGS (7)
  1. METHIMAZOLE [Suspect]
     Indication: HYPERTHYROIDISM
     Dosage: ;3 TIMES A DAY;
  2. ATORVASTATIN CALCIUM [Concomitant]
  3. RAMIPRIL [Concomitant]
  4. METOPROLOL TARTRATE [Concomitant]
  5. PANTOPRAZOLE SODIUM [Concomitant]
  6. RALOXIFENE HCL [Concomitant]
  7. CALCIUM [Concomitant]

REACTIONS (2)
  - HEPATITIS [None]
  - JAUNDICE CHOLESTATIC [None]
